FAERS Safety Report 7720968-5 (Version None)
Quarter: 2011Q3

REPORT INFORMATION
  Report Type: 
  Country: None (occurrence: None)
  Receive Date: 20110830
  Receipt Date: 20110830
  Transmission Date: 20111222
  Serious: Yes (Other)
  Sender: FDA-Public Use
  Company Number: None

PATIENT
  Sex: Female
  Weight: 58.9676 kg

DRUGS (2)
  1. CHANTIX [Suspect]
     Indication: SMOKING CESSATION THERAPY
     Dosage: PER LABEL WEEK 1. 5 MG/DAILY - .5 MG 2/DAY WEEK 2. 1 MG/DAY
     Dates: start: 20110501
  2. CHANTIX [Suspect]
     Indication: SMOKING CESSATION THERAPY
     Dosage: PER LABEL WEEK 1. 5 MG/DAILY - .5 MG 2/DAY WEEK 2. 1 MG/DAY
     Dates: start: 20110515

REACTIONS (3)
  - OEDEMA MOUTH [None]
  - RASH [None]
  - EYE PRURITUS [None]
